FAERS Safety Report 6015590-5 (Version None)
Quarter: 2008Q4

REPORT INFORMATION
  Report Type: 
  Country: None (occurrence: None)
  Receive Date: 20081222
  Receipt Date: 20081217
  Transmission Date: 20090506
  Serious: Yes (Death)
  Sender: FDA-Public Use
  Company Number: US-WYE-H07279208

PATIENT
  Age: 70 Year
  Sex: Male

DRUGS (1)
  1. PRISTIQ [Suspect]
     Route: 048
     Dates: end: 20081201

REACTIONS (3)
  - COMPLETED SUICIDE [None]
  - DRUG WITHDRAWAL SYNDROME [None]
  - INTENTIONAL DRUG MISUSE [None]
